FAERS Safety Report 7833996-6 (Version None)
Quarter: 2011Q4

REPORT INFORMATION
  Report Type: 
  Country: None (occurrence: None)
  Receive Date: 20111024
  Receipt Date: 20111019
  Transmission Date: 20120403
  Serious: Yes (Other)
  Sender: FDA-Public Use
  Company Number: US-VERTEX PHARMACEUTICALS INC.-AE-2011-001765

PATIENT
  Sex: Male

DRUGS (7)
  1. TRAMADOL HCL [Concomitant]
  2. INCIVEK [Suspect]
     Indication: HEPATITIS C
     Dates: start: 20110903
  3. FLEXERIL [Concomitant]
  4. RIBAVIRIN [Concomitant]
     Indication: HEPATITIS C
     Dates: start: 20110903
  5. PAXIL [Concomitant]
  6. PREGABALIN [Concomitant]
  7. PEGASYS [Concomitant]
     Indication: HEPATITIS C
     Dates: start: 20110903

REACTIONS (7)
  - CRYING [None]
  - AGGRESSION [None]
  - IMPULSIVE BEHAVIOUR [None]
  - CHROMATURIA [None]
  - MEMORY IMPAIRMENT [None]
  - ANGER [None]
  - IRRITABILITY [None]
